FAERS Safety Report 9681290 (Version 2)
Quarter: 2014Q1

REPORT INFORMATION
  Report Type: Report from Study
  Country: VE (occurrence: VE)
  Receive Date: 20131111
  Receipt Date: 20140121
  Transmission Date: 20141002
  Serious: Yes (Other)
  Sender: FDA-Public Use
  Company Number: PHHY2013VE127440

PATIENT
  Age: 78 Year
  Sex: Female

DRUGS (3)
  1. ACLASTA [Suspect]
     Indication: RHEUMATOID ARTHRITIS
     Dosage: 5 MG, ANNUALLY
     Route: 042
     Dates: start: 201102
  2. ACLASTA [Suspect]
     Indication: OFF LABEL USE
  3. MICARDIS PLUS [Concomitant]
     Indication: HYPERTENSION
     Dosage: 1 UKN, DAILY

REACTIONS (1)
  - Arthritis infective [Recovering/Resolving]
